FAERS Safety Report 6722132-5 (Version None)
Quarter: 2010Q2

REPORT INFORMATION
  Report Type: 
  Country: None (occurrence: None)
  Receive Date: 20100512
  Receipt Date: 20100428
  Transmission Date: 20101027
  Serious: Yes (Hospitalization)
  Sender: FDA-Public Use
  Company Number: US-ELI_LILLY_AND_COMPANY-US201004008215

PATIENT
  Sex: Female

DRUGS (8)
  1. FORTEO [Suspect]
     Indication: OSTEOPOROSIS
     Dosage: 20 UG, AS NEEDED
     Dates: start: 20090801, end: 20100407
  2. PLAVIX [Concomitant]
  3. LIPITOR [Concomitant]
  4. DIGOXIN [Concomitant]
  5. CALTRATE /00108001/ [Concomitant]
  6. VITAMIN D [Concomitant]
  7. FISH OIL [Concomitant]
  8. GLUCOSAMINE W/CHONDROITIN [Concomitant]

REACTIONS (3)
  - FLANK PAIN [None]
  - MALAISE [None]
  - NEPHROLITHIASIS [None]
